FAERS Safety Report 22851990 (Version 2)
Quarter: 2023Q4

REPORT INFORMATION
  Report Type: Spontaneous
  Country: US (occurrence: None)
  Receive Date: 20230823
  Receipt Date: 20231019
  Transmission Date: 20240109
  Serious: No
  Sender: FDA-Public Use
  Company Number: 2023A190431

PATIENT
  Sex: Female

DRUGS (2)
  1. SYMLIN [Suspect]
     Active Substance: PRAMLINTIDE ACETATE
     Dosage: 1.5ML UNKNOWN
     Route: 058
     Dates: start: 202307
  2. SYMLIN [Suspect]
     Active Substance: PRAMLINTIDE ACETATE
     Dosage: UNKNOWN
     Route: 058

REACTIONS (4)
  - Blood glucose abnormal [Unknown]
  - Incorrect dose administered by product [Unknown]
  - Drug ineffective [Unknown]
  - Device defective [Unknown]
